FAERS Safety Report 9476677 (Version 1)
Quarter: 2013Q3

REPORT INFORMATION
  Report Type: Spontaneous
  Country: US (occurrence: US)
  Receive Date: 20130826
  Receipt Date: 20130826
  Transmission Date: 20140515
  Serious: No
  Sender: FDA-Public Use
  Company Number: US-BRISTOL-MYERS SQUIBB COMPANY-19040872

PATIENT
  Age: 35 Year
  Sex: Female
  Weight: 108.84 kg

DRUGS (6)
  1. KENALOG INJ [Suspect]
     Indication: RHINITIS ALLERGIC
  2. CLARITIN [Concomitant]
     Route: 048
     Dates: start: 20110228
  3. ORTHO TRI-CYCLEN [Concomitant]
     Route: 048
     Dates: start: 20110622
  4. EPIPEN [Concomitant]
     Dates: start: 20110502
  5. INSULIN [Concomitant]
     Dates: start: 20110502
  6. BACTRIM DS [Concomitant]
     Route: 048
     Dates: start: 20120316

REACTIONS (1)
  - Injection site atrophy [Unknown]
